FAERS Safety Report 12257339 (Version 3)
Quarter: 2016Q2

REPORT INFORMATION
  Report Type: Report from Study
  Country: ES (occurrence: ES)
  Receive Date: 20160412
  Receipt Date: 20160607
  Transmission Date: 20160815
  Serious: Yes (Death, Hospitalization)
  Sender: FDA-Public Use
  Company Number: ES-ROCHE-1609892

PATIENT
  Age: 85 Year
  Sex: Female

DRUGS (21)
  1. TRASTUZUMAB [Suspect]
     Active Substance: TRASTUZUMAB
     Dosage: MAINTENANCE DOSE?DATE OF LAST DOSE PRIOR TO SAE: 18/MAY/2015
     Route: 042
     Dates: start: 20121218, end: 20150608
  2. DOCETAXEL. [Suspect]
     Active Substance: DOCETAXEL
     Indication: HER-2 POSITIVE BREAST CANCER
     Dosage: DATE OF LAST DOSE PRIOR TO SAE: 12/MAR/2013
     Route: 042
     Dates: start: 20121127, end: 20130312
  3. NAPROXEN. [Concomitant]
     Active Substance: NAPROXEN
     Indication: PAIN
     Route: 065
     Dates: start: 20121116, end: 20130129
  4. SALINE [Concomitant]
     Active Substance: SODIUM CHLORIDE
     Dosage: 1 UNIT
     Route: 065
     Dates: start: 20131103, end: 20131103
  5. PERTUZUMAB [Suspect]
     Active Substance: PERTUZUMAB
     Indication: HER-2 POSITIVE BREAST CANCER
     Dosage: LOADING DOSE.
     Route: 042
     Dates: start: 20121127, end: 20121127
  6. PERTUZUMAB [Suspect]
     Active Substance: PERTUZUMAB
     Dosage: MAINTENANCE DOSE?DATE OF LAST DOSE PRIOR TO SAE: 08/JUN/2015, 18/MAY/2015
     Route: 042
     Dates: start: 20121218, end: 20150608
  7. PARACETAMOL [Concomitant]
     Active Substance: ACETAMINOPHEN
     Route: 065
     Dates: start: 20131104, end: 20131104
  8. FLUMIL (ACETYLCYSTEINE) [Concomitant]
     Active Substance: ACETYLCYSTEINE
     Route: 065
     Dates: start: 20131106, end: 20131108
  9. FENTANILO [Concomitant]
     Active Substance: FENTANYL
     Dosage: 1/72 H DAILY
     Route: 065
  10. CLEXANE [Concomitant]
     Active Substance: ENOXAPARIN SODIUM
     Route: 065
     Dates: start: 20131103, end: 20131108
  11. ORFIDAL [Concomitant]
     Active Substance: LORAZEPAM
     Route: 065
     Dates: start: 20131105, end: 20131107
  12. BEGLAN [Concomitant]
     Route: 065
  13. FLUTICASONE PROPIONATE. [Concomitant]
     Active Substance: FLUTICASONE PROPIONATE
     Dosage: 1/12 H DAILY
     Route: 065
  14. SERC [Concomitant]
     Active Substance: BETAHISTINE HYDROCHLORIDE
     Route: 065
     Dates: start: 199601
  15. OMEPRAZOL [Concomitant]
     Active Substance: OMEPRAZOLE
     Route: 065
     Dates: start: 20131105, end: 20131108
  16. LEVOFLOXACINO [Concomitant]
     Active Substance: LEVOFLOXACIN
     Route: 065
     Dates: start: 20131103, end: 20131105
  17. BEGLAN [Concomitant]
     Dosage: 1/12 H DAILY
     Route: 065
  18. PSYLLIUM [Concomitant]
     Active Substance: PLANTAGO SEED
  19. TRASTUZUMAB [Suspect]
     Active Substance: TRASTUZUMAB
     Indication: HER-2 POSITIVE BREAST CANCER
     Dosage: LOADING DOSE
     Route: 042
     Dates: start: 20121127, end: 20121127
  20. STILNOX [Concomitant]
     Active Substance: ZOLPIDEM TARTRATE
     Indication: SLEEP DISORDER
     Route: 065
     Dates: start: 20121116
  21. PULMICORT TURBUHALER [Concomitant]
     Active Substance: BUDESONIDE
     Route: 065
     Dates: start: 20131103, end: 20131106

REACTIONS (4)
  - Cardiac failure [Recovered/Resolved with Sequelae]
  - Cardiac failure congestive [Fatal]
  - Respiratory tract infection [Recovered/Resolved]
  - Asthma [Recovered/Resolved]

NARRATIVE: CASE EVENT DATE: 20150522
